FAERS Safety Report 9994766 (Version 3)
Quarter: 2014Q2

REPORT INFORMATION
  Report Type: Spontaneous
  Country: US (occurrence: None)
  Receive Date: 20140306
  Receipt Date: 20140627
  Transmission Date: 20141212
  Serious: Yes (Hospitalization)
  Sender: FDA-Public Use
  Company Number: CIO14014949

PATIENT
  Age: 40 Year
  Sex: Male

DRUGS (1)
  1. ZZZQUIL NIGHTIME SLEEP-AID [Suspect]
     Indication: COUGH
     Dosage: 12 OZ, 2/DAY FOR 1 DAY, ORAL
     Dates: start: 20140223, end: 20140223

REACTIONS (8)
  - Hallucination [None]
  - Dysarthria [None]
  - Psychomotor hyperactivity [None]
  - Abnormal behaviour [None]
  - Eye disorder [None]
  - Off label use [None]
  - Incorrect dose administered [None]
  - Intentional overdose [None]
